FAERS Safety Report 6008181-3 (Version None)
Quarter: 2008Q4

REPORT INFORMATION
  Report Type: 
  Country: None (occurrence: None)
  Receive Date: 20081217
  Receipt Date: 20080731
  Transmission Date: 20090506
  Serious: No
  Sender: FDA-Public Use
  Company Number: US-ASTRAZENECA-2008UW14983

PATIENT
  Age: 59 Year
  Sex: Female
  Weight: 67.1 kg

DRUGS (6)
  1. CRESTOR [Suspect]
     Indication: BLOOD CHOLESTEROL INCREASED
     Route: 048
     Dates: start: 20080701
  2. PREMARIN [Concomitant]
  3. ALLEGRA [Concomitant]
  4. ATENOLOL [Concomitant]
  5. SUDAFED 12 HOUR [Concomitant]
  6. ASPIRIN [Concomitant]

REACTIONS (2)
  - FATIGUE [None]
  - SENSATION OF HEAVINESS [None]
